FAERS Safety Report 11058516 (Version 1)
Quarter: 2015Q2

REPORT INFORMATION
  Report Type: Spontaneous
  Country: US (occurrence: None)
  Receive Date: 20150420
  Receipt Date: 20150420
  Transmission Date: 20150821
  Serious: No
  Sender: FDA-Public Use
  Company Number: AEGR001196

PATIENT
  Age: 59 Year
  Sex: Male

DRUGS (31)
  1. CHOLECALCIFEROL [Concomitant]
     Active Substance: CHOLECALCIFEROL
  2. EPIPEN [Concomitant]
     Active Substance: EPINEPHRINE
  3. GUAIFENESIN. [Concomitant]
     Active Substance: GUAIFENESIN
  4. LANTUS [Concomitant]
     Active Substance: INSULIN GLARGINE
  5. LORAZEPAM. [Concomitant]
     Active Substance: LORAZEPAM
  6. METFORMIN HCL (METFORMIN HYDROCHLORIDE) [Concomitant]
  7. METOPROLOL SUCCINATE. [Concomitant]
     Active Substance: METOPROLOL SUCCINATE
  8. MONTELUKAST SODIUM. [Concomitant]
     Active Substance: MONTELUKAST SODIUM
  9. RABEPRAZOLE [Concomitant]
     Active Substance: RABEPRAZOLE
  10. THIAMINE [Concomitant]
     Active Substance: THIAMINE
  11. TIOTROPIUM [Concomitant]
     Active Substance: TIOTROPIUM
  12. VITAMIN C [Concomitant]
     Active Substance: ASCORBIC ACID
  13. ALBUTEROL (SALBUTAMOL SULFATE) [Concomitant]
  14. ASPIRIN (ACETYLSALICYLIC ACID) [Concomitant]
     Active Substance: ASPIRIN
  15. BUSPIRONE [Concomitant]
     Active Substance: BUSPIRONE HYDROCHLORIDE
  16. ACETAMINOPHEN. [Concomitant]
     Active Substance: ACETAMINOPHEN
  17. PRAVASTATIN [Concomitant]
     Active Substance: PRAVASTATIN\PRAVASTATIN SODIUM
  18. FLUTICASONE PROPIONATE W/SALMETEROL [Concomitant]
     Active Substance: FLUTICASONE PROPIONATE\SALMETEROL XINAFOATE
  19. NIACIN (NICOTINIC ACID) [Concomitant]
  20. JUXTAPID [Suspect]
     Active Substance: LOMITAPIDE MESYLATE
     Indication: TYPE IIA HYPERLIPIDAEMIA
     Route: 048
     Dates: start: 20130905, end: 20140401
  21. CLOPIDOGREL [Concomitant]
     Active Substance: CLOPIDOGREL BISULFATE
  22. FENOFIBRATE. [Concomitant]
     Active Substance: FENOFIBRATE
  23. LISINOPRIL. [Concomitant]
     Active Substance: LISINOPRIL
  24. MULTIVITAMIN (VITAMIN NOS) [Concomitant]
  25. NITROGLYCERINE (GLYCERYL TRINITRATE) [Concomitant]
  26. OMEGA 3 (FISH OIL) [Concomitant]
     Active Substance: OMEGA-3 FATTY ACIDS
  27. VITAMIN E [Suspect]
     Active Substance: .ALPHA.-TOCOPHEROL
  28. ZOLPIDEM [Concomitant]
     Active Substance: ZOLPIDEM\ZOLPIDEM TARTRATE
  29. CYCLOBENZAPRINE HCL (CYCLOBENZAPRINE HYDROCHLORIDE) [Concomitant]
  30. EZETIMIBE. [Concomitant]
     Active Substance: EZETIMIBE
  31. FOLIC ACID. [Concomitant]
     Active Substance: FOLIC ACID

REACTIONS (7)
  - Insomnia [None]
  - Low density lipoprotein increased [None]
  - Glomerular filtration rate decreased [None]
  - Forced expiratory volume abnormal [None]
  - Blood cholesterol increased [None]
  - Blood creatinine increased [None]
  - Blood glucose increased [None]

NARRATIVE: CASE EVENT DATE: 20130916
